FAERS Safety Report 10636251 (Version 2)
Quarter: 2014Q4

REPORT INFORMATION
  Report Type: Spontaneous
  Country: FR (occurrence: FR)
  Receive Date: 20141206
  Receipt Date: 20141206
  Transmission Date: 20150529
  Serious: Yes (Other)
  Sender: FDA-Public Use
  Company Number: FR-ROCHE-1462168

PATIENT
  Sex: Male
  Weight: 63.7 kg

DRUGS (1)
  1. ERIVEDGE [Suspect]
     Active Substance: VISMODEGIB
     Indication: PRODUCT USED FOR UNKNOWN INDICATION
     Route: 065
     Dates: start: 20140613

REACTIONS (5)
  - Dysgeusia [Not Recovered/Not Resolved]
  - Muscle spasms [Not Recovered/Not Resolved]
  - Alopecia [Unknown]
  - Squamous cell carcinoma [Recovering/Resolving]
  - Actinic keratosis [Recovering/Resolving]

NARRATIVE: CASE EVENT DATE: 20141126
